FAERS Safety Report 5817308-5 (Version None)
Quarter: 2008Q3

REPORT INFORMATION
  Report Type: 
  Country: None (occurrence: None)
  Receive Date: 20080722
  Receipt Date: 20080715
  Transmission Date: 20090109
  Serious: Yes (Hospitalization)
  Sender: FDA-Public Use
  Company Number: B0529941A

PATIENT
  Age: 37 Year
  Sex: Male

DRUGS (2)
  1. FLIXONASE [Suspect]
     Route: 045
     Dates: start: 20080201
  2. NASONEX [Suspect]
     Dosage: 50MCG TWICE PER DAY
     Route: 045
     Dates: start: 20080401, end: 20080501

REACTIONS (1)
  - BRAIN ABSCESS [None]
